FAERS Safety Report 5024636-2 (Version None)
Quarter: 2006Q2

REPORT INFORMATION
  Report Type: 
  Country: None (occurrence: None)
  Receive Date: 20060427
  Receipt Date: 20060126
  Transmission Date: 20061013
  Serious: Yes (Death)
  Sender: FDA-Public Use
  Company Number: US-JNJFOC-20050805126

PATIENT
  Age: 86 Year
  Sex: Female

DRUGS (1)
  1. REMINYL (GALANTAMINE HBR) TABLETS [Suspect]
     Indication: DEMENTIA
     Dosage: 1 DOSE(S), 2 IN 1 DAY, ORAL
     Route: 048
     Dates: start: 20020101

REACTIONS (1)
  - MYOCARDIAL INFARCTION [None]
